FAERS Safety Report 5814588-7 (Version None)
Quarter: 2008Q3

REPORT INFORMATION
  Report Type: 
  Country: None (occurrence: None)
  Receive Date: 20080718
  Receipt Date: 20071025
  Transmission Date: 20090109
  Serious: No
  Sender: FDA-Public Use
  Company Number: US-KINGPHARMUSA00001-K200701385

PATIENT

DRUGS (6)
  1. LEVOXYL [Suspect]
  2. ESTRADIOL [Suspect]
  3. DICYCLOMINE [Suspect]
  4. TRANYLCYPROMINE SULFATE [Suspect]
  5. PANTOPRAZOLE SODIUM [Suspect]
  6. LITHIUM [Suspect]

REACTIONS (1)
  - LIVER FUNCTION TEST ABNORMAL [None]
